FAERS Safety Report 6084853-X (Version None)
Quarter: 2009Q1

REPORT INFORMATION
  Report Type: 
  Country: None (occurrence: None)
  Receive Date: 20090218
  Receipt Date: 20090211
  Transmission Date: 20090719
  Serious: Yes (Life-Threatening)
  Sender: FDA-Public Use
  Company Number: 2009-191188-NL

PATIENT
  Age: 27 Year
  Sex: Male

DRUGS (4)
  1. NANDROLONE DECANOATE [Suspect]
     Dosage: INTRAMUSCULAR
     Route: 030
  2. NANDROLONE DECANOATE [Suspect]
     Dosage: ORAL, RESTARTED 3 MONTHS LATER
     Route: 048
  3. ANDROSTENEDIONE [Suspect]
     Dosage: ORAL
     Route: 048
  4. ANDROSTENEDIONE [Suspect]
     Dosage: ORAL
     Route: 048

REACTIONS (10)
  - CHOLECYSTECTOMY [None]
  - DRUG ABUSE [None]
  - HAEMATOCRIT DECREASED [None]
  - HEPATIC ADENOMA [None]
  - HEPATIC HAEMATOMA [None]
  - PELIOSIS HEPATIS [None]
  - PERITONEAL HAEMORRHAGE [None]
  - RENAL FAILURE [None]
  - TACHYCARDIA [None]
  - TUMOUR HAEMORRHAGE [None]
